FAERS Safety Report 11072613 (Version 1)
Quarter: 2015Q2

REPORT INFORMATION
  Report Type: Spontaneous
  Country: US (occurrence: US)
  Receive Date: 20150428
  Receipt Date: 20150428
  Transmission Date: 20150821
  Serious: No
  Sender: FDA-Public Use
  Company Number: US-LEO PHARMA-233758

PATIENT
  Age: 56 Year
  Sex: Female

DRUGS (1)
  1. PICATO [Suspect]
     Active Substance: INGENOL MEBUTATE
     Indication: PRECANCEROUS SKIN LESION

REACTIONS (14)
  - Application site swelling [Unknown]
  - Application site dryness [Unknown]
  - Application site discolouration [Unknown]
  - Application site pruritus [Unknown]
  - Application site vesicles [Unknown]
  - Application site scab [Unknown]
  - Application site pain [Unknown]
  - Application site reaction [Unknown]
  - Drug administered at inappropriate site [Unknown]
  - Eye swelling [Unknown]
  - Insomnia [Unknown]
  - Application site exfoliation [Unknown]
  - Application site erythema [Unknown]
  - Photosensitivity reaction [Unknown]
